FAERS Safety Report 7428676-5 (Version None)
Quarter: 2011Q2

REPORT INFORMATION
  Report Type: 
  Country: None (occurrence: None)
  Receive Date: 20110421
  Receipt Date: 20110413
  Transmission Date: 20111010
  Serious: No
  Sender: FDA-Public Use
  Company Number: US-BIOGENIDEC-2011BI014187

PATIENT
  Age: 62 Year
  Sex: Male

DRUGS (3)
  1. AVONEX [Suspect]
     Indication: MULTIPLE SCLEROSIS
     Route: 030
     Dates: start: 20031023
  2. BACLOFEN [Concomitant]
     Indication: MULTIPLE SCLEROSIS
  3. TIZANIDINE [Concomitant]
     Indication: MULTIPLE SCLEROSIS

REACTIONS (3)
  - GAIT DISTURBANCE [None]
  - ANXIETY [None]
  - EMOTIONAL DISORDER [None]
